FAERS Safety Report 6467251-6 (Version None)
Quarter: 2009Q4

REPORT INFORMATION
  Report Type: 
  Country: None (occurrence: None)
  Receive Date: 20091202
  Receipt Date: 20091117
  Transmission Date: 20100525
  Serious: Yes (Congenital Anomaly)
  Sender: FDA-Public Use
  Company Number: GB-BRISTOL-MYERS SQUIBB COMPANY-14876346

PATIENT
  Sex: Female
  Weight: 3 kg

DRUGS (2)
  1. METFORMIN HCL [Suspect]
     Route: 064
  2. CLOMID [Concomitant]

REACTIONS (1)
  - CLEFT LIP [None]
